FAERS Safety Report 19032163 (Version 2)
Quarter: 2021Q2

REPORT INFORMATION
  Report Type: Spontaneous
  Country: US (occurrence: US)
  Receive Date: 20210319
  Receipt Date: 20210402
  Transmission Date: 20210717
  Serious: Yes (Death, Hospitalization, Other)
  Sender: FDA-Public Use
  Company Number: US-CATALYST PHARMACEUTICALS, INC-2021CAT00092

PATIENT
  Age: 86 Year
  Sex: Female
  Weight: 49.89 kg

DRUGS (5)
  1. FIRDAPSE [Suspect]
     Active Substance: AMIFAMPRIDINE PHOSPHATE
     Indication: MYASTHENIC SYNDROME
     Dosage: 20 MG, 3X/DAY (7:30 AM, 10:30 AM, 2 PM)
     Route: 048
     Dates: end: 202103
  2. FIRDAPSE [Suspect]
     Active Substance: AMIFAMPRIDINE PHOSPHATE
     Dosage: 10 MG, 2X/DAY (6 PM, 9 PM)
     Route: 048
     Dates: end: 202103
  3. MESTINON [Concomitant]
     Active Substance: PYRIDOSTIGMINE BROMIDE
  4. SYNTHROID [Concomitant]
     Active Substance: LEVOTHYROXINE SODIUM
  5. UNSPECIFIED MEDICATION FOR SODIUM LEVEL REGULATION [Concomitant]

REACTIONS (7)
  - Cerebral haemorrhage [Not Recovered/Not Resolved]
  - Unresponsive to stimuli [Recovered/Resolved]
  - Head injury [Not Recovered/Not Resolved]
  - Memory impairment [Not Recovered/Not Resolved]
  - Fall [Recovered/Resolved]
  - Seizure [Not Recovered/Not Resolved]
  - Myasthenic syndrome [Fatal]

NARRATIVE: CASE EVENT DATE: 202103
